FAERS Safety Report 7388711-X (Version None)
Quarter: 2011Q2

REPORT INFORMATION
  Report Type: 
  Country: None (occurrence: None)
  Receive Date: 20110401
  Receipt Date: 20110325
  Transmission Date: 20111010
  Serious: Yes (Hospitalization)
  Sender: FDA-Public Use
  Company Number: SK-BRISTOL-MYERS SQUIBB COMPANY-15635881

PATIENT
  Age: 45 Year
  Sex: Female

DRUGS (3)
  1. BARACLUDE [Suspect]
     Indication: HEPATITIS B
     Dosage: FILM COATED TABLET,LAST DOSE 9DEC10
     Route: 048
     Dates: start: 20101115
  2. CHLOROQUINE [Suspect]
     Indication: PSORIATIC ARTHROPATHY
     Route: 048
     Dates: end: 20101209
  3. SULFASALAZINE [Suspect]
     Indication: PSORIATIC ARTHROPATHY
     Route: 048
     Dates: start: 20101101, end: 20101209

REACTIONS (1)
  - CYTOLYTIC HEPATITIS [None]
